FAERS Safety Report 8379682-8 (Version None)
Quarter: 2012Q2

REPORT INFORMATION
  Report Type: 
  Country: None (occurrence: None)
  Receive Date: 20120523
  Receipt Date: 20120515
  Transmission Date: 20120825
  Serious: Yes (Other)
  Sender: FDA-Public Use
  Company Number: US-ASTELLAS-2012US004762

PATIENT
  Age: 64 Year
  Sex: Female

DRUGS (2)
  1. PROGRAF [Suspect]
     Dosage: 5 MG, UID/QD
     Route: 065
  2. PROGRAF [Suspect]
     Indication: PROPHYLAXIS AGAINST GRAFT VERSUS HOST DISEASE
     Dosage: UNK
     Route: 065
     Dates: start: 20000101

REACTIONS (3)
  - OFF LABEL USE [None]
  - HIP ARTHROPLASTY [None]
  - DIABETES MELLITUS [None]
